FAERS Safety Report 4633536-9 (Version None)
Quarter: 2005Q2

REPORT INFORMATION
  Report Type: 
  Country: None (occurrence: None)
  Receive Date: 20050331
  Receipt Date: 20041118
  Transmission Date: 20051028
  Serious: Yes (Other)
  Sender: FDA-Public Use
  Company Number: 200415613BCC

PATIENT
  Age: 34 Year
  Sex: Male

DRUGS (1)
  1. ALEVE (CAPLET) [Suspect]
     Indication: HEADACHE
     Dosage: 220 MG, ONCE, ORAL
     Route: 048
     Dates: start: 20041118

REACTIONS (4)
  - CHEST DISCOMFORT [None]
  - DYSPNOEA [None]
  - HYPERSENSITIVITY [None]
  - PRURITUS [None]
